FAERS Safety Report 9951007 (Version 1)
Quarter: 2014Q1

REPORT INFORMATION
  Report Type: Report from Study
  Country: US (occurrence: US)
  Receive Date: 20140304
  Receipt Date: 20140304
  Transmission Date: 20141002
  Serious: No
  Sender: FDA-Public Use
  Company Number: US-ABBVIE-13P-163-1067831-00

PATIENT
  Sex: Male
  Weight: 90.8 kg

DRUGS (2)
  1. HUMIRA [Suspect]
     Indication: PSORIASIS
     Dates: start: 2009, end: 2013
  2. HUMIRA [Suspect]
     Indication: PSORIASIS
     Dates: start: 20130301

REACTIONS (9)
  - Medication error [Unknown]
  - Drug dose omission [Unknown]
  - Nausea [Unknown]
  - Rash [Recovered/Resolved]
  - Psoriasis [Recovered/Resolved]
  - Viral infection [Recovered/Resolved]
  - Psoriasis [Unknown]
  - Psoriasis [Recovering/Resolving]
  - Pruritus generalised [Recovering/Resolving]
